FAERS Safety Report 13833352 (Version 2)
Quarter: 2017Q3

REPORT INFORMATION
  Report Type: Spontaneous
  Country: PE (occurrence: PE)
  Receive Date: 20170804
  Receipt Date: 20170828
  Transmission Date: 20171127
  Serious: Yes (Other)
  Sender: FDA-Public Use
  Company Number: PE-LPDUSPRD-20171081

PATIENT
  Age: 40 Year
  Sex: Female
  Weight: 79 kg

DRUGS (1)
  1. VENOFER [Suspect]
     Active Substance: IRON SUCROSE
     Dosage: 100 MG (1 AMPULE/DAY)
     Route: 041
     Dates: start: 20170705, end: 20170705

REACTIONS (8)
  - Chills [Unknown]
  - Nausea [Unknown]
  - Drug prescribing error [Unknown]
  - Vomiting [Unknown]
  - Dyspnoea [Unknown]
  - Hypotension [Unknown]
  - Malaise [Unknown]
  - Dizziness [Unknown]

NARRATIVE: CASE EVENT DATE: 20170705
